FAERS Safety Report 18169816 (Version 1)
Quarter: 2020Q3

REPORT INFORMATION
  Report Type: Spontaneous
  Country: US (occurrence: US)
  Receive Date: 20200819
  Receipt Date: 20200819
  Transmission Date: 20201103
  Serious: Yes (Hospitalization)
  Sender: FDA-Public Use
  Company Number: US-009507513-2008USA009580

PATIENT
  Sex: Male

DRUGS (2)
  1. ADU?S100. [Concomitant]
     Active Substance: ADU-S100
     Dosage: UNK; 5 INJECTIONS
  2. KEYTRUDA [Suspect]
     Active Substance: PEMBROLIZUMAB
     Indication: HEAD AND NECK CANCER
     Dosage: UNK; 3 KEYTRUDA INFUSIONS

REACTIONS (3)
  - Swelling [Unknown]
  - Weight decreased [Unknown]
  - Dysphagia [Unknown]
